FAERS Safety Report 8509963-6 (Version None)
Quarter: 2012Q3

REPORT INFORMATION
  Report Type: 
  Country: None (occurrence: None)
  Receive Date: 20120713
  Receipt Date: 20120703
  Transmission Date: 20120928
  Serious: Yes (Hospitalization)
  Sender: FDA-Public Use
  Company Number: JP-ELI_LILLY_AND_COMPANY-JP201205000395

PATIENT
  Sex: Female

DRUGS (5)
  1. ETODOLAC [Concomitant]
     Dosage: 100 MG, TID
     Route: 048
     Dates: start: 20120309
  2. FORTEO [Suspect]
     Indication: OSTEOPOROSIS
     Dosage: 20 UG, EACH MORNING
     Route: 058
     Dates: start: 20120322, end: 20120430
  3. FORTEO [Suspect]
     Dosage: UNK, EACH MORNING
     Route: 058
     Dates: start: 20120622
  4. GLAKAY [Concomitant]
     Dosage: 15 MG, TID
     Route: 048
     Dates: start: 20110305
  5. REBAMIPIDE [Concomitant]
     Dosage: 100 MG, TID
     Route: 048
     Dates: start: 20110329

REACTIONS (1)
  - CARDIAC FAILURE [None]
